FAERS Safety Report 5857395-1 (Version None)
Quarter: 2008Q3

REPORT INFORMATION
  Report Type: 
  Country: None (occurrence: None)
  Receive Date: 20080825
  Receipt Date: 20080825
  Transmission Date: 20090109
  Serious: Yes (Hospitalization)
  Sender: FDA-Public Use
  Company Number: None

PATIENT
  Age: 44 Year
  Sex: Male
  Weight: 72 kg

DRUGS (1)
  1. CISPLATIN [Suspect]
     Indication: NASOPHARYNGEAL CANCER
     Dosage: 180MG  DAY 1  IV  (FIRST DOSE)
     Route: 042
     Dates: start: 20080811, end: 20080811

REACTIONS (3)
  - BLOOD CREATININE INCREASED [None]
  - CONVULSION [None]
  - HYPONATRAEMIA [None]
